FAERS Safety Report 14816842 (Version 1)
Quarter: 2018Q2

REPORT INFORMATION
  Report Type: Report from Study
  Country: US (occurrence: US)
  Receive Date: 20180426
  Receipt Date: 20180426
  Transmission Date: 20180711
  Serious: Yes (Death, Other)
  Sender: FDA-Public Use
  Company Number: US-PFIZER INC-2018169954

PATIENT
  Sex: Female

DRUGS (5)
  1. DEXAMETHASONE. [Concomitant]
     Active Substance: DEXAMETHASONE
     Dosage: 8 MG, 2X/DAY (TOTAL OF SIX DOSES STARTING THE NIGHT BEFORE DOCETAXEL ADMINISTRATION)
     Route: 048
  2. DOCETAXEL. [Suspect]
     Active Substance: DOCETAXEL
     Indication: BREAST CANCER METASTATIC
     Dosage: 75 MG/M2, CYCLIC (ON DAY 1, EIGHT 3-WEEK CYCLES)
  3. TRASTUZUMAB. [Suspect]
     Active Substance: TRASTUZUMAB
     Indication: BREAST CANCER METASTATIC
     Dosage: 4 MG/KG, FIRST DOSE( LOADING DOSE) OVER 90 MINUTES ON DAY 1)
  4. CARBOPLATIN. [Suspect]
     Active Substance: CARBOPLATIN
     Indication: BREAST CANCER METASTATIC
     Dosage: AUC 6 MG/ML/MIN OVER 30 TO 60 MINUTES ON DAY 1
  5. TRASTUZUMAB. [Suspect]
     Active Substance: TRASTUZUMAB
     Dosage: 2 MG/KG, CYCLIC (OVER 30 MINUTES ON DAYS 1, 8, AND 15, EIGHT 3-WEEK CYCLES)

REACTIONS (3)
  - Sepsis [Fatal]
  - Neutropenic infection [Unknown]
  - Enterocolitis [Unknown]
